FAERS Safety Report 5358047-7 (Version None)
Quarter: 2007Q2

REPORT INFORMATION
  Report Type: 
  Country: None (occurrence: None)
  Receive Date: 20070530
  Receipt Date: 20061110
  Transmission Date: 20071010
  Serious: Yes (Other)
  Sender: FDA-Public Use
  Company Number: US200611002486

PATIENT
  Age: 13 Year
  Sex: Male

DRUGS (9)
  1. ZYPREXA [Suspect]
  2. RITALIN [Concomitant]
  3. RISPERDAL  /SWE/ (RISPERIDONE) [Concomitant]
  4. ADDERAL (AMFETAMINE ASPARTATE, AMFETAMINE SULFATE, DEXAMFETAMINE SACCH [Concomitant]
  5. PROZAC (FLOOXETINE HYDROCHLORIDE) [Concomitant]
  6. MELLERIL ^NOVARTIS^ (THIORIDAZINE HYDROCHLORIDE) [Concomitant]
  7. TRILEPTAL [Concomitant]
  8. PREDNISONE TAB [Concomitant]
  9. THEOPHYLLINE [Concomitant]

REACTIONS (1)
  - CONVULSION [None]
